FAERS Safety Report 5881060-8 (Version None)
Quarter: 2008Q3

REPORT INFORMATION
  Report Type: 
  Country: None (occurrence: None)
  Receive Date: 20080912
  Receipt Date: 20080617
  Transmission Date: 20090109
  Serious: No
  Sender: FDA-Public Use
  Company Number: US-ABBOTT-08P-163-0458207-00

PATIENT
  Sex: Female
  Weight: 76.272 kg

DRUGS (18)
  1. HUMIRA [Suspect]
     Indication: CROHN'S DISEASE
     Route: 058
     Dates: start: 20080616
  2. HUMIRA [Suspect]
     Indication: RHEUMATOID ARTHRITIS
  3. HUMIRA [Suspect]
  4. TOPIRAMATE [Concomitant]
     Indication: DEPRESSION
  5. TOPIRAMATE [Concomitant]
     Indication: INSOMNIA
  6. ALPRAZOLAM [Concomitant]
     Indication: SEDATIVE THERAPY
  7. KD-LOR [Concomitant]
     Indication: MINERAL SUPPLEMENTATION
     Dates: start: 19820101
  8. GABAPENTIN [Concomitant]
     Indication: NEUROPATHY PERIPHERAL
  9. BUPROPION HCL [Concomitant]
     Indication: DEPRESSION
  10. ROPINIROLE HYDROCHLORIDE [Concomitant]
     Indication: NEUROPATHY PERIPHERAL
     Dosage: 4MG AT NIGHT, 2- 0.25MG IN AM
  11. ROPINIROLE HYDROCHLORIDE [Concomitant]
     Indication: RESTLESS LEGS SYNDROME
  12. CELECOXIB [Concomitant]
     Indication: ARTHRITIS
  13. ZEGRID [Concomitant]
     Indication: GASTROOESOPHAGEAL REFLUX DISEASE
  14. TOLTERODINE TARTRATE [Concomitant]
     Indication: URINARY INCONTINENCE
  15. DULOXETINE HYDROCHLORIDE [Concomitant]
     Indication: DEPRESSION
  16. DARVOCET-N 100 [Concomitant]
     Indication: PAIN
  17. CYANOCOBALAMIN-TANNIN COMPLEX [Concomitant]
     Indication: DRUG USE FOR UNKNOWN INDICATION
     Route: 050
  18. FENTANYL [Concomitant]
     Indication: PAIN
     Dosage: EVERY 72 HOURS, PATCH
     Route: 061

REACTIONS (3)
  - ACCIDENTAL EXPOSURE [None]
  - INJECTION SITE PAIN [None]
  - PAIN IN EXTREMITY [None]
